FAERS Safety Report 17568617 (Version 1)
Quarter: 2020Q1

REPORT INFORMATION
  Report Type: Spontaneous
  Country: DE (occurrence: DE)
  Receive Date: 20200320
  Receipt Date: 20200320
  Transmission Date: 20200409
  Serious: Yes (Life-Threatening, Hospitalization, Disabling, Other)
  Sender: FDA-Public Use
  Company Number: DE-009507513-2003-07-1061

PATIENT
  Age: 56 Year
  Sex: Female
  Weight: 62 kg

DRUGS (3)
  1. INTRON A [Suspect]
     Active Substance: INTERFERON ALFA-2B
     Indication: MALIGNANT MELANOMA
     Dosage: DOSE: 3 MIU TIW, DURATION: 3 MONTH(S)
     Route: 058
     Dates: start: 200303, end: 20030530
  2. BISOPROLOL [Concomitant]
     Active Substance: BISOPROLOL
     Dosage: DOSE: 12.5 MG QD
     Route: 048
  3. INTRON A [Suspect]
     Active Substance: INTERFERON ALFA-2B
     Dosage: DOSE: 4.5 MIU TIW, DURATION: 1 MONTH(S)
     Route: 058
     Dates: start: 20030531, end: 200307

REACTIONS (6)
  - Urticaria [Unknown]
  - Autoimmune thyroiditis [Unknown]
  - Salmonellosis [Unknown]
  - Myasthenia gravis [Not Recovered/Not Resolved]
  - Diplopia [Unknown]
  - Weight decreased [Unknown]

NARRATIVE: CASE EVENT DATE: 20030615
